FAERS Safety Report 22806679 (Version 3)
Quarter: 2024Q2

REPORT INFORMATION
  Report Type: Spontaneous
  Country: CA (occurrence: None)
  Receive Date: 20230810
  Receipt Date: 20240612
  Transmission Date: 20240716
  Serious: Yes (Hospitalization)
  Sender: FDA-Public Use
  Company Number: CA-ROCHE-3402413

PATIENT
  Age: 46 Year
  Sex: Female

DRUGS (27)
  1. RITUXIMAB [Suspect]
     Active Substance: RITUXIMAB
     Indication: Rheumatoid arthritis
     Route: 042
  2. ASPIRIN [Concomitant]
     Active Substance: ASPIRIN
     Indication: Factor V Leiden mutation
     Route: 065
  3. ALVESCO [Concomitant]
     Active Substance: CICLESONIDE
  4. AZATHIOPRINE [Concomitant]
     Active Substance: AZATHIOPRINE
  5. AZATHIOPRINE [Concomitant]
     Active Substance: AZATHIOPRINE
     Route: 065
  6. BENADRYL [Concomitant]
     Active Substance: DIPHENHYDRAMINE HYDROCHLORIDE
     Route: 048
  7. CALCIUM CITRATE [Concomitant]
     Active Substance: CALCIUM CITRATE
  8. DEXILANT [Concomitant]
     Active Substance: DEXLANSOPRAZOLE
     Indication: Gastrooesophageal reflux disease
     Route: 065
  9. DOMPERIDONE [Concomitant]
     Active Substance: DOMPERIDONE
     Indication: Gastrooesophageal reflux disease
  10. ESOMEPRAZOLE [Concomitant]
     Active Substance: ESOMEPRAZOLE
     Route: 065
  11. IMODIUM [Concomitant]
     Active Substance: LOPERAMIDE HYDROCHLORIDE
  12. MYCOPHENOLATE MOFETIL [Concomitant]
     Active Substance: MYCOPHENOLATE MOFETIL
  13. OFEV [Concomitant]
     Active Substance: NINTEDANIB
     Route: 065
  14. OXYGEN [Concomitant]
     Active Substance: OXYGEN
  15. HERBALS\PLANTAGO OVATA LEAF [Concomitant]
     Active Substance: HERBALS\PLANTAGO OVATA LEAF
  16. PREDNISONE [Concomitant]
     Active Substance: PREDNISONE
     Indication: Diarrhoea
  17. RANITIDINE [Concomitant]
     Active Substance: RANITIDINE
     Indication: Gastrooesophageal reflux disease
  18. TYLENOL [Concomitant]
     Active Substance: ACETAMINOPHEN
  19. GINGER [Concomitant]
     Active Substance: GINGER
  20. FAMOTIDINE [Concomitant]
     Active Substance: FAMOTIDINE
  21. FLUCONAZOLE [Concomitant]
     Active Substance: FLUCONAZOLE
  22. LOSEC [Concomitant]
     Active Substance: OMEPRAZOLE
  23. OMEGA 3 [Concomitant]
     Active Substance: CAPSAICIN
  24. RISEDRONATE SODIUM [Concomitant]
     Active Substance: RISEDRONATE SODIUM
  25. TRAZODONE [Concomitant]
     Active Substance: TRAZODONE HYDROCHLORIDE
  26. TYLENOL [Concomitant]
     Active Substance: ACETAMINOPHEN
  27. UMECLIDINIUM BROMIDE\VILANTEROL TRIFENATATE [Concomitant]
     Active Substance: UMECLIDINIUM BROMIDE\VILANTEROL TRIFENATATE

REACTIONS (2)
  - COVID-19 [Unknown]
  - Immunodeficiency [Unknown]
